FAERS Safety Report 9926387 (Version 1)
Quarter: 2014Q1

REPORT INFORMATION
  Report Type: Spontaneous
  Country: US (occurrence: US)
  Receive Date: 20140226
  Receipt Date: 20140226
  Transmission Date: 20141002
  Serious: No
  Sender: FDA-Public Use
  Company Number: US-AMGEN-USASP2013068001

PATIENT
  Age: 61 Year
  Sex: Female
  Weight: 73.47 kg

DRUGS (3)
  1. ENBREL [Suspect]
     Indication: PRODUCT USED FOR UNKNOWN INDICATION
     Dosage: 50 MG, QWK
     Route: 058
  2. PROBIOTICS [Concomitant]
     Dosage: UNK
     Route: 048
  3. DIGESTIVE ENZYME [Concomitant]
     Dosage: UNK
     Route: 048

REACTIONS (1)
  - Sinusitis [Recovered/Resolved]
